FAERS Safety Report 7805387-5 (Version None)
Quarter: 2011Q4

REPORT INFORMATION
  Report Type: 
  Country: None (occurrence: None)
  Receive Date: 20111010
  Receipt Date: 20110926
  Transmission Date: 20120403
  Serious: Yes (Hospitalization, Other)
  Sender: FDA-Public Use
  Company Number: US-BAYER-2011-017366

PATIENT
  Age: 79 Year
  Sex: Male
  Weight: 71.58 kg

DRUGS (32)
  1. RIVAROXABAN [Interacting]
     Dosage: 5 MG, BID
     Route: 048
     Dates: start: 20091003, end: 20091003
  2. ACETYLSALICYLIC ACID SRT [Suspect]
     Indication: ACUTE CORONARY SYNDROME
     Route: 048
     Dates: end: 20110123
  3. SEPTRA [Concomitant]
  4. ADVAIR DISKUS 100/50 [Concomitant]
  5. LIDODERM [Concomitant]
  6. FUROSEMIDE [Concomitant]
  7. CENTRUM SILVER [Concomitant]
  8. VERSED [Concomitant]
  9. POTASSIUM CHLORIDE [Concomitant]
  10. ATROVENT [Concomitant]
  11. PREDNISONE [Concomitant]
  12. CLOPIDOGREL [Interacting]
     Route: 048
     Dates: end: 20110123
  13. ALLOPURINOL [Concomitant]
  14. LIPITOR [Concomitant]
  15. OMEPRAZOLE [Concomitant]
  16. CIPROFLOXACIN [Concomitant]
  17. ACETAMINOPHEN [Concomitant]
     Dosage: DOSAGE FORM: UNKNOWN
  18. COLCHICINE [Concomitant]
  19. RAMIPRIL [Concomitant]
  20. NEURONTIN [Concomitant]
  21. AVAPRO [Concomitant]
  22. AMARYL [Concomitant]
  23. MESALAMINE [Concomitant]
  24. FLONASE [Concomitant]
  25. RIVAROXABAN [Interacting]
     Dosage: 5 MG, BID
     Route: 048
     Dates: start: 20091004
  26. DEMEROL [Concomitant]
  27. NORVASC [Concomitant]
  28. SODIUM CHLORIDE INJ [Concomitant]
  29. RIVAROXABAN [Interacting]
     Indication: ACUTE CORONARY SYNDROME
     Dosage: 5 MG, BID
     Route: 048
  30. ZOLPIDEM [Concomitant]
  31. TRAZODONE HYDROCHLORIDE [Concomitant]
  32. COREG [Concomitant]

REACTIONS (2)
  - INTESTINAL OBSTRUCTION [None]
  - UPPER GASTROINTESTINAL HAEMORRHAGE [None]
